FAERS Safety Report 6814902-X (Version None)
Quarter: 2010Q3

REPORT INFORMATION
  Report Type: 
  Country: None (occurrence: None)
  Receive Date: 20100702
  Receipt Date: 20100618
  Transmission Date: 20110219
  Serious: Yes (Other)
  Sender: FDA-Public Use
  Company Number: US-ROCHE-711023

PATIENT
  Sex: Female

DRUGS (4)
  1. CELLCEPT [Suspect]
     Indication: PRODUCT USED FOR UNKNOWN INDICATION
     Dosage: THREE TABLETS IN MORNING AND TWO IN EVENING
     Route: 048
     Dates: start: 20090101
  2. CIMETIDINE [Concomitant]
  3. HYDROXYZINE [Concomitant]
  4. SINGULAIR [Concomitant]

REACTIONS (1)
  - AUTOIMMUNE DISORDER [None]
